FAERS Safety Report 10082843 (Version 2)
Quarter: 2014Q2

REPORT INFORMATION
  Report Type: Report from Study
  Country: PH (occurrence: PH)
  Receive Date: 20140416
  Receipt Date: 20140505
  Transmission Date: 20141212
  Serious: No
  Sender: FDA-Public Use
  Company Number: PHHY2014PH044819

PATIENT
  Sex: Male

DRUGS (3)
  1. TASIGNA [Suspect]
     Indication: CHRONIC MYELOID LEUKAEMIA
     Dosage: 600 MG, DAILY
     Route: 048
     Dates: start: 20140118, end: 201402
  2. TASIGNA [Suspect]
     Dosage: 300 MG, DAILY (02 CAPSULES PER DAY)
     Route: 048
     Dates: start: 201402, end: 201404
  3. TASIGNA [Suspect]
     Dosage: 2 DF, BID (600 MG/DAY)
     Route: 048
     Dates: start: 201404

REACTIONS (1)
  - Abdominal pain upper [Recovered/Resolved]
